FAERS Safety Report 6256016-6 (Version None)
Quarter: 2009Q2

REPORT INFORMATION
  Report Type: 
  Country: None (occurrence: None)
  Receive Date: 20090630
  Receipt Date: 20090630
  Transmission Date: 20091009
  Serious: No
  Sender: FDA-Public Use
  Company Number: None

PATIENT
  Age: 70 Year
  Sex: Female
  Weight: 61.2356 kg

DRUGS (3)
  1. GABAPENTIN [Suspect]
     Indication: INTERVERTEBRAL DISC PROTRUSION
     Dosage: 3 PILLS 3 X DAY
     Dates: start: 20090606, end: 20090620
  2. GABAPENTIN [Suspect]
     Indication: LUMBAR SPINAL STENOSIS
     Dosage: 3 PILLS 3 X DAY
     Dates: start: 20090606, end: 20090620
  3. GABAPENTIN [Suspect]
     Indication: SCIATICA
     Dosage: 3 PILLS 3 X DAY
     Dates: start: 20090606, end: 20090620

REACTIONS (2)
  - DRUG INEFFECTIVE [None]
  - GASTROOESOPHAGEAL REFLUX DISEASE [None]
